FAERS Safety Report 13067807 (Version 1)
Quarter: 2016Q4

REPORT INFORMATION
  Report Type: Spontaneous
  Country: US (occurrence: US)
  Receive Date: 20161227
  Receipt Date: 20161227
  Transmission Date: 20170207
  Serious: Yes (Hospitalization)
  Sender: FDA-Public Use
  Company Number: None

PATIENT
  Age: 59 Year
  Sex: Female

DRUGS (6)
  1. LOSARTAN POTASSIUM. [Concomitant]
     Active Substance: LOSARTAN POTASSIUM
  2. INVOKANA [Concomitant]
     Active Substance: CANAGLIFLOZIN
  3. HARVONI [Suspect]
     Active Substance: LEDIPASVIR\SOFOSBUVIR
     Indication: CHRONIC HEPATITIS C
     Dates: start: 20160930
  4. GLYBURIDE/METFORMIN [Concomitant]
     Active Substance: GLYBURIDE\METFORMIN
  5. TRULICITY [Concomitant]
     Active Substance: DULAGLUTIDE
  6. POTASSIUM [Concomitant]
     Active Substance: POTASSIUM

REACTIONS (3)
  - Bronchitis [None]
  - Asthma [None]
  - Cough [None]

NARRATIVE: CASE EVENT DATE: 20161227
